FAERS Safety Report 16210992 (Version 1)
Quarter: 2019Q2

REPORT INFORMATION
  Report Type: Spontaneous
  Country: US (occurrence: US)
  Receive Date: 20190418
  Receipt Date: 20190418
  Transmission Date: 20190711
  Serious: No
  Sender: FDA-Public Use
  Company Number: US-DRREDDYS-USA/USA/19/0109546

PATIENT
  Age: 77 Year
  Sex: Male
  Weight: 78.6 kg

DRUGS (4)
  1. CLOPIDOGREL BISULFATE 75 MG [Suspect]
     Active Substance: CLOPIDOGREL BISULFATE
     Indication: MYOCARDIAL INFARCTION
     Route: 048
     Dates: start: 20190326
  2. INSULIN [Concomitant]
     Active Substance: INSULIN NOS
     Indication: DIABETES MELLITUS
  3. METOPROLOL SUCCINATE. [Concomitant]
     Active Substance: METOPROLOL SUCCINATE
     Indication: HYPERTENSION
     Route: 048
  4. ATORVASTATIN TABLETS 10MG, 20 MG, 40 MG (091650) [Concomitant]
     Active Substance: ATORVASTATIN
     Indication: BLOOD CHOLESTEROL INCREASED
     Route: 048

REACTIONS (1)
  - Contusion [Unknown]

NARRATIVE: CASE EVENT DATE: 20190326
